FAERS Safety Report 9676018 (Version 15)
Quarter: 2014Q3

REPORT INFORMATION
  Report Type: Spontaneous
  Country: US (occurrence: US)
  Receive Date: 20131107
  Receipt Date: 20140922
  Transmission Date: 20150326
  Serious: Yes (Death, Hospitalization, Other)
  Sender: FDA-Public Use
  Company Number: PHEH2007US016490

PATIENT
  Age: 48 Year
  Sex: Female
  Weight: 87.53 kg

DRUGS (62)
  1. AREDIA [Suspect]
     Active Substance: PAMIDRONATE DISODIUM
     Dosage: 60 MG, QMO
     Route: 042
     Dates: start: 20051108
  2. ZOLPIDEM [Concomitant]
     Active Substance: ZOLPIDEM\ZOLPIDEM TARTRATE
  3. MULTIVITAMINS [Concomitant]
     Active Substance: VITAMINS
  4. FLUVAX [Concomitant]
     Active Substance: INFLUENZA VIRUS VACCINE
  5. UNASYN [Concomitant]
     Active Substance: AMPICILLIN SODIUM\SULBACTAM SODIUM
  6. DIPHENHYDRAMINE [Concomitant]
     Active Substance: DIPHENHYDRAMINE
  7. PROMETHAZINE [Concomitant]
     Active Substance: PROMETHAZINE\PROMETHAZINE HYDROCHLORIDE
  8. LIDODERM [Concomitant]
     Active Substance: LIDOCAINE
  9. AVELOX [Concomitant]
     Active Substance: MOXIFLOXACIN HYDROCHLORIDE
  10. NEXIUM [Concomitant]
     Active Substance: ESOMEPRAZOLE MAGNESIUM
  11. MIRALAX [Concomitant]
     Active Substance: POLYETHYLENE GLYCOL 3350
  12. LEVAQUIN [Concomitant]
     Active Substance: LEVOFLOXACIN
  13. CYTOXAN [Concomitant]
     Active Substance: CYCLOPHOSPHAMIDE
  14. LEVAQUIN [Concomitant]
     Active Substance: LEVOFLOXACIN
  15. METHADONE [Concomitant]
     Active Substance: METHADONE HYDROCHLORIDE
  16. DILAUDID [Concomitant]
     Active Substance: HYDROMORPHONE HYDROCHLORIDE
  17. OXAZEPAM. [Concomitant]
     Active Substance: OXAZEPAM
  18. VINCRISTINE [Concomitant]
     Active Substance: VINCRISTINE
  19. FRIVENT [Concomitant]
  20. PREMPRO [Concomitant]
     Active Substance: ESTROGENS, CONJUGATED\MEDROXYPROGESTERONE ACETATE
  21. CYCLOPHOSPHAMIDE. [Concomitant]
     Active Substance: CYCLOPHOSPHAMIDE
  22. MELPHALAN [Concomitant]
     Active Substance: MELPHALAN
  23. FLEXERIL [Concomitant]
     Active Substance: CYCLOBENZAPRINE HYDROCHLORIDE
  24. CIPRO [Concomitant]
     Active Substance: CIPROFLOXACIN HYDROCHLORIDE
  25. LOPROX [Concomitant]
     Active Substance: CICLOPIROX\CICLOPIROX OLAMINE
  26. ZOVIRAX [Concomitant]
     Active Substance: ACYCLOVIR
  27. XANAX [Concomitant]
     Active Substance: ALPRAZOLAM
     Dosage: 0.5 MG, UNK
  28. DOXYCYCLINE. [Concomitant]
     Active Substance: DOXYCYCLINE
     Dosage: 100 MG, UNK
     Dates: start: 20010407
  29. PREDNISONE. [Concomitant]
     Active Substance: PREDNISONE
     Dosage: 20 MG, UNK
  30. NEURONTIN [Concomitant]
     Active Substance: GABAPENTIN
  31. DEMEROL [Concomitant]
     Active Substance: MEPERIDINE HYDROCHLORIDE
  32. DURAGESIC [Concomitant]
     Active Substance: FENTANYL
  33. KLOR-CON [Concomitant]
     Active Substance: POTASSIUM CHLORIDE
  34. ALEVE [Concomitant]
     Active Substance: NAPROXEN SODIUM
  35. VITAMINS [Concomitant]
     Active Substance: VITAMINS
  36. ONDANSETRON HYDROCHLORIDE. [Concomitant]
     Active Substance: ONDANSETRON HYDROCHLORIDE
  37. METOPROLOL [Concomitant]
     Active Substance: METOPROLOL
  38. SOMA [Concomitant]
     Active Substance: CARISOPRODOL
  39. ZOMETA [Suspect]
     Active Substance: ZOLEDRONIC ACID
     Dosage: 4 MG
     Route: 042
     Dates: start: 20070328
  40. COLACE [Concomitant]
     Active Substance: DOCUSATE SODIUM
  41. PENICILLIN ^GRUNENTHAL^ [Concomitant]
  42. FILGRASTIM [Concomitant]
     Active Substance: FILGRASTIM
  43. STEROIDS NOS [Concomitant]
     Active Substance: UNSPECIFIED INGREDIENT
  44. KLONOPIN [Concomitant]
     Active Substance: CLONAZEPAM
  45. SOLU-MEDROL [Concomitant]
     Active Substance: METHYLPREDNISOLONE SODIUM SUCCINATE
  46. LASIX [Concomitant]
     Active Substance: FUROSEMIDE
  47. AMBIEN [Concomitant]
     Active Substance: ZOLPIDEM TARTRATE
  48. ROXANOL [Concomitant]
     Active Substance: MORPHINE SULFATE
  49. MS CONTIN [Concomitant]
     Active Substance: MORPHINE SULFATE
  50. CALCIUM [Concomitant]
     Active Substance: CALCIUM
  51. LAMISIL [Concomitant]
     Active Substance: TERBINAFINE HYDROCHLORIDE
  52. BIAXIN [Concomitant]
     Active Substance: CLARITHROMYCIN
  53. FLOXIN ^DAIICHI^ [Concomitant]
  54. ATIVAN [Concomitant]
     Active Substance: LORAZEPAM
  55. ALKERAN [Concomitant]
     Active Substance: MELPHALAN
  56. OXYCODONE [Concomitant]
     Active Substance: OXYCODONE
  57. HYDROCORTISONE. [Concomitant]
     Active Substance: HYDROCORTISONE
  58. ZITHROMAX [Concomitant]
     Active Substance: AZITHROMYCIN DIHYDRATE
  59. K-DUR [Concomitant]
     Active Substance: POTASSIUM CHLORIDE
  60. TOPROL XL [Concomitant]
     Active Substance: METOPROLOL SUCCINATE
  61. METOPROLOL SUCCINATE. [Concomitant]
     Active Substance: METOPROLOL SUCCINATE
  62. BACTRIM [Concomitant]
     Active Substance: SULFAMETHOXAZOLE\TRIMETHOPRIM

REACTIONS (198)
  - Upper respiratory tract infection [Unknown]
  - Infection [Not Recovered/Not Resolved]
  - Denture wearer [Unknown]
  - Cough [Unknown]
  - Facial pain [Unknown]
  - Bone lesion [Unknown]
  - Os trigonum syndrome [Unknown]
  - Myositis [Unknown]
  - Hypertrophy [Unknown]
  - Tachycardia [Unknown]
  - Renal failure acute [Unknown]
  - Hernia [Unknown]
  - Upper limb fracture [Unknown]
  - Gait disturbance [Unknown]
  - Gastrooesophageal reflux disease [Unknown]
  - Sinus tachycardia [Unknown]
  - Haemoptysis [Unknown]
  - Deformity [Unknown]
  - Discomfort [Unknown]
  - Anxiety [Unknown]
  - Light chain analysis [Unknown]
  - Myalgia [Unknown]
  - Intestinal obstruction [Recovering/Resolving]
  - Intervertebral disc protrusion [Unknown]
  - Metastases to bone [Unknown]
  - Rib fracture [Unknown]
  - Plantar fasciitis [Unknown]
  - Haematuria [Recovered/Resolved]
  - Tremor [Unknown]
  - Aortic arteriosclerosis [Unknown]
  - Clostridium difficile colitis [Unknown]
  - Pathological fracture [Unknown]
  - Pulmonary fibrosis [Unknown]
  - Fluid overload [Unknown]
  - Metabolic acidosis [Unknown]
  - Pneumonia streptococcal [Unknown]
  - Ecchymosis [Unknown]
  - Leukopenia [Unknown]
  - Mastication disorder [Unknown]
  - Pallor [Unknown]
  - Sinus congestion [Unknown]
  - Dyspnoea [Unknown]
  - Sepsis [Unknown]
  - Anhedonia [Unknown]
  - Depression [Unknown]
  - Tenderness [Unknown]
  - Disease progression [Unknown]
  - Toxicity to various agents [Unknown]
  - Osteonecrosis [Unknown]
  - Giant cell tumour of tendon sheath [Unknown]
  - Blood calcium decreased [Unknown]
  - Hypercalcaemia [Unknown]
  - Appetite disorder [Unknown]
  - Convulsion [Unknown]
  - Acute respiratory failure [Unknown]
  - Spinal osteoarthritis [Unknown]
  - Abdominal hernia [Unknown]
  - Left ventricular hypertrophy [Unknown]
  - Adrenal disorder [Unknown]
  - Malnutrition [Unknown]
  - Plasma cell myeloma recurrent [Unknown]
  - Clavicle fracture [Unknown]
  - Dry mouth [Unknown]
  - Meningitis [Unknown]
  - Hyperhidrosis [Unknown]
  - Oxygen saturation decreased [Unknown]
  - Haemophilus infection [Unknown]
  - Pain [Unknown]
  - Parathyroid tumour benign [Unknown]
  - Cervical dysplasia [Unknown]
  - Asthenia [Unknown]
  - Abdominal pain upper [Unknown]
  - Blood glucose increased [Unknown]
  - Blood lactate dehydrogenase increased [Unknown]
  - Hypertension [Unknown]
  - Abdominal discomfort [Unknown]
  - Urinary tract infection [Unknown]
  - Cervical vertebral fracture [Unknown]
  - Pulmonary calcification [Unknown]
  - Altered state of consciousness [Unknown]
  - Staphylococcal infection [Unknown]
  - Joint stiffness [Unknown]
  - Pulmonary congestion [Unknown]
  - Hyperlipidaemia [Unknown]
  - Neck pain [Unknown]
  - Nocturia [Unknown]
  - Essential hypertension [Unknown]
  - Diarrhoea [Unknown]
  - Haemorrhage [Unknown]
  - Skin lesion [Unknown]
  - Musculoskeletal pain [Unknown]
  - Leukocytosis [Unknown]
  - Chills [Unknown]
  - Osteonecrosis of jaw [Recovering/Resolving]
  - Poor personal hygiene [Not Recovered/Not Resolved]
  - Life expectancy shortened [Unknown]
  - Plasma cell myeloma [Unknown]
  - Metastases to spine [Unknown]
  - Bone pain [Not Recovered/Not Resolved]
  - Pain in extremity [Unknown]
  - Fatigue [Unknown]
  - Glomerular filtration rate decreased [Unknown]
  - Renal cyst [Unknown]
  - Weight decreased [Unknown]
  - Chronic obstructive pulmonary disease [Unknown]
  - Fibula fracture [Unknown]
  - Arthropathy [Unknown]
  - Pyrexia [Unknown]
  - Muscular weakness [Unknown]
  - Exposed bone in jaw [Unknown]
  - Decubitus ulcer [Unknown]
  - Lung infiltration [Unknown]
  - Fall [Unknown]
  - Visual impairment [Unknown]
  - Pancytopenia [Unknown]
  - Lactic acidosis [Unknown]
  - Aortic disorder [Unknown]
  - Bronchiolitis [Unknown]
  - Leukaemia [Unknown]
  - Monoclonal gammopathy [Unknown]
  - Device failure [Unknown]
  - Acute respiratory distress syndrome [Unknown]
  - Pneumonia [Unknown]
  - Body temperature increased [Unknown]
  - Rhonchi [Unknown]
  - Systemic inflammatory response syndrome [Unknown]
  - Bone disorder [Unknown]
  - Lymphadenopathy [Unknown]
  - Thyroid neoplasm [Unknown]
  - Beta 2 microglobulin increased [Unknown]
  - Monoclonal immunoglobulin present [Unknown]
  - Polyneuropathy [Unknown]
  - Neuropathy peripheral [Unknown]
  - Paraesthesia [Unknown]
  - Osteopenia [Unknown]
  - Blood triglycerides increased [Unknown]
  - Protein urine absent [Unknown]
  - Foot fracture [Unknown]
  - Abdominal distension [Unknown]
  - Hypophosphataemia [Unknown]
  - Pneumothorax [Unknown]
  - Lower limb fracture [Unknown]
  - Exostosis [Unknown]
  - Alopecia [Unknown]
  - Wound [Unknown]
  - Compression fracture [Unknown]
  - Vomiting [Unknown]
  - Osteoporosis [Unknown]
  - Mobility decreased [Unknown]
  - Oropharyngeal pain [Unknown]
  - Wheezing [Unknown]
  - Emotional distress [Unknown]
  - Physical disability [Unknown]
  - Injury [Unknown]
  - Hair follicle tumour benign [Unknown]
  - Pleuritic pain [Not Recovered/Not Resolved]
  - Generalised oedema [Unknown]
  - Intervertebral disc degeneration [Unknown]
  - Osteolysis [Unknown]
  - Pulmonary oedema [Unknown]
  - Haematoma [Unknown]
  - Lung disorder [Not Recovered/Not Resolved]
  - Hypotension [Unknown]
  - Tachypnoea [Unknown]
  - Pulmonary embolism [Unknown]
  - Dysgeusia [Unknown]
  - Hypomagnesaemia [Unknown]
  - Psychotic disorder [Unknown]
  - Dysphagia [Unknown]
  - Influenza like illness [Unknown]
  - Dry skin [Unknown]
  - Death [Fatal]
  - Lower respiratory tract infection [Recovering/Resolving]
  - Nasal congestion [Unknown]
  - Lung consolidation [Unknown]
  - Fungal infection [Unknown]
  - Hypophagia [Unknown]
  - Dental caries [Unknown]
  - Nodule [Unknown]
  - Bronchitis [Unknown]
  - Burning sensation [Unknown]
  - Procedural pain [Unknown]
  - Renal failure [Unknown]
  - Anisocytosis [Unknown]
  - Plasmacytosis [Unknown]
  - Dizziness [Unknown]
  - Spondylolisthesis [Unknown]
  - Agitation [Unknown]
  - Osteoarthritis [Unknown]
  - Vulval haematoma [Unknown]
  - Insomnia [Unknown]
  - Oedema peripheral [Unknown]
  - Arthralgia [Unknown]
  - Mucosal inflammation [Unknown]
  - Cardiomyopathy [Unknown]
  - Respiratory gas exchange disorder [Unknown]
  - Musculoskeletal chest pain [Unknown]
  - Lower gastrointestinal haemorrhage [Unknown]

NARRATIVE: CASE EVENT DATE: 20080804
